FAERS Safety Report 25002177 (Version 5)
Quarter: 2025Q4

REPORT INFORMATION
  Report Type: Spontaneous
  Country: US (occurrence: US)
  Receive Date: 20250224
  Receipt Date: 20251005
  Transmission Date: 20260117
  Serious: No
  Sender: SANOFI AVENTIS
  Company Number: US-SA-2025SA053572

PATIENT
  Age: 63 Year
  Sex: Female
  Weight: 68.18 kg

DRUGS (15)
  1. AUBAGIO [Suspect]
     Active Substance: TERIFLUNOMIDE
     Indication: Multiple sclerosis
     Dosage: 14 MG, QD
     Route: 048
     Dates: start: 20240401
  2. VITAMIN D3 [Concomitant]
     Active Substance: CHOLECALCIFEROL
     Dosage: 50 UG (2000 U)
     Route: 048
     Dates: start: 20240917
  3. FISH OIL [Concomitant]
     Active Substance: FISH OIL
     Dosage: 1000 MG
     Route: 048
     Dates: start: 20240917
  4. VITAMIN E [Concomitant]
     Active Substance: .ALPHA.-TOCOPHEROL
     Dosage: 180 MG (400 U)
     Route: 048
     Dates: start: 20240917
  5. Super calcium [Concomitant]
     Dosage: 1500 MG (600 CA)
     Route: 048
     Dates: start: 20240917
  6. BUMETANIDE [Concomitant]
     Active Substance: BUMETANIDE
     Dosage: 1 MG
     Route: 048
     Dates: start: 20240910
  7. POTASSIUM GLUCONATE [Concomitant]
     Active Substance: POTASSIUM GLUCONATE
     Dosage: 595 MG (99K)
     Route: 048
     Dates: start: 20240917
  8. BUMEX [Concomitant]
     Active Substance: BUMETANIDE
     Dosage: 1 MG
     Route: 048
     Dates: start: 20240917
  9. ALBUTEROL SULFATE [Concomitant]
     Active Substance: ALBUTEROL SULFATE
     Dosage: 108 (90 BASE)
     Route: 055
     Dates: start: 20240910
  10. AMLODIPINE [Concomitant]
     Active Substance: AMLODIPINE BESYLATE
  11. NORVASC [Concomitant]
     Active Substance: AMLODIPINE BESYLATE
  12. MAGNESIUM GLYCINATE [Concomitant]
     Active Substance: MAGNESIUM GLYCINATE
     Dosage: 120 MG
     Route: 048
     Dates: start: 20240917
  13. ALENDRONATE SODIUM [Concomitant]
     Active Substance: ALENDRONATE SODIUM
     Dosage: 70 MG
     Route: 048
     Dates: start: 20240910
  14. ZOCOR [Concomitant]
     Active Substance: SIMVASTATIN
  15. TYLENOL 8HR [Concomitant]
     Active Substance: ACETAMINOPHEN
     Indication: Arthralgia
     Dosage: 650 MG
     Route: 048
     Dates: start: 20240917

REACTIONS (8)
  - Oedema peripheral [Unknown]
  - Osteopenia [Unknown]
  - Arthritis [Unknown]
  - Swelling [Unknown]
  - Grip strength decreased [Recovered/Resolved]
  - Bronchitis [Recovering/Resolving]
  - COVID-19 [Unknown]
  - Pain in extremity [Unknown]

NARRATIVE: CASE EVENT DATE: 20250221
